FAERS Safety Report 24356839 (Version 1)
Quarter: 2024Q3

REPORT INFORMATION
  Report Type: Other
  Country: GB (occurrence: GB)
  Receive Date: 20240924
  Receipt Date: 20240924
  Transmission Date: 20241016
  Serious: Yes (Other)
  Sender: WES PHARMA
  Company Number: GB-WES Pharma Inc-2161971

PATIENT
  Age: 75 Year
  Sex: Male

DRUGS (3)
  1. OXYCODONE HYDROCHLORIDE [Suspect]
     Active Substance: OXYCODONE HYDROCHLORIDE
     Indication: Neuralgia
  2. BUPRENORPHINE [Suspect]
     Active Substance: BUPRENORPHINE
  3. DUTASTERIDE [Concomitant]
     Active Substance: DUTASTERIDE

REACTIONS (2)
  - Hallucination [Unknown]
  - Confusional state [Unknown]
